FAERS Safety Report 6288879-2 (Version None)
Quarter: 2009Q3

REPORT INFORMATION
  Report Type: 
  Country: None (occurrence: None)
  Receive Date: 20090729
  Receipt Date: 20090716
  Transmission Date: 20100115
  Serious: Yes (Other)
  Sender: FDA-Public Use
  Company Number: US-ELI_LILLY_AND_COMPANY-US200907003963

PATIENT
  Sex: Female
  Weight: 61.678 kg

DRUGS (17)
  1. SYMBYAX [Suspect]
     Indication: DEPRESSION
     Dosage: 1 D/F, EACH EVENING
     Route: 048
     Dates: start: 20090508, end: 20090713
  2. CYMBALTA [Suspect]
     Indication: DEPRESSION
     Dosage: 60 MG, DAILY (1/D)
     Route: 048
     Dates: start: 20060901
  3. BUSPAR [Concomitant]
     Indication: DEPRESSION
     Dosage: 30 MG, 2/D
     Route: 048
  4. ALPRAZOLAM [Concomitant]
     Indication: DEPRESSION
     Dosage: 0.5 MG, 3/D
     Route: 048
  5. SYNTHROID [Concomitant]
     Indication: HYPOTHYROIDISM
     Dosage: 75 UG, DAILY (1/D)
     Route: 048
  6. LOVAZA [Concomitant]
     Indication: HYPERLIPIDAEMIA
     Dosage: 1 G, 4/D
     Route: 048
  7. HORMONES AND RELATED AGENTS [Concomitant]
     Route: 061
  8. TANDEM PLUS [Concomitant]
     Dosage: 1 D/F, DAILY (1/D)
     Route: 048
  9. MULTI-VITAMIN [Concomitant]
  10. LUNESTA [Concomitant]
     Indication: INSOMNIA
     Dosage: 3 MG, EACH EVENING
     Route: 048
  11. ALLI [Concomitant]
     Indication: WEIGHT DECREASED
  12. FIORICET W/ CODEINE [Concomitant]
     Dosage: 1 D/F, AS NEEDED
     Route: 048
  13. PROMETHAZINE [Concomitant]
     Indication: NAUSEA
     Dosage: 25 MG, AS NEEDED
     Route: 048
  14. RESPA-ARM [Concomitant]
     Dosage: 1 D/F, AS NEEDED
     Route: 048
  15. IBUPROFEN [Concomitant]
     Indication: PAIN
     Dosage: 800 MG, AS NEEDED
  16. IMITREX [Concomitant]
     Indication: MIGRAINE
     Dosage: 6 MG, AS NEEDED
     Route: 058
  17. VALERIAN ROOT [Concomitant]

REACTIONS (9)
  - ABDOMINAL DISTENSION [None]
  - ALANINE AMINOTRANSFERASE INCREASED [None]
  - ANXIETY [None]
  - ASPARTATE AMINOTRANSFERASE INCREASED [None]
  - FATIGUE [None]
  - LIVER FUNCTION TEST ABNORMAL [None]
  - MALAISE [None]
  - OFF LABEL USE [None]
  - PALPITATIONS [None]
